FAERS Safety Report 11412108 (Version 1)
Quarter: 2015Q3

REPORT INFORMATION
  Report Type: Spontaneous
  Country: US (occurrence: US)
  Receive Date: 20150824
  Receipt Date: 20150824
  Transmission Date: 20151125
  Serious: No
  Sender: FDA-Public Use
  Company Number: GXBR2015US001740

PATIENT
  Age: 70 Year
  Sex: Female

DRUGS (1)
  1. BUPROPION HCL TABLETS [Suspect]
     Active Substance: BUPROPION
     Indication: DEPRESSION
     Dosage: 1/2 DF, QD IN THE MORNING
     Route: 048
     Dates: start: 20150321

REACTIONS (1)
  - Weight increased [Not Recovered/Not Resolved]
